FAERS Safety Report 10372736 (Version 2)
Quarter: 2014Q3

REPORT INFORMATION
  Report Type: Spontaneous
  Country: US (occurrence: US)
  Receive Date: 20140808
  Receipt Date: 20140808
  Transmission Date: 20150326
  Serious: No
  Sender: FDA-Public Use
  Company Number: US-BRISTOL-MYERS SQUIBB COMPANY-19398130

PATIENT
  Age: 67 Year
  Sex: Female

DRUGS (8)
  1. CALCIUM [Concomitant]
     Active Substance: CALCIUM
  2. ASPIRIN. [Concomitant]
     Active Substance: ASPIRIN
  3. LEVOTHYROXINE [Concomitant]
     Active Substance: LEVOTHYROXINE
  4. OSTEO BI-FLEX [Concomitant]
     Active Substance: CHONDROITIN SULFATE A\GLUCOSAMINE
  5. FISH OIL [Concomitant]
     Active Substance: FISH OIL
  6. SPRYCEL [Suspect]
     Active Substance: DASATINIB
     Indication: CHRONIC MYELOID LEUKAEMIA
     Dates: start: 20130712
  7. COD LIVER OIL [Concomitant]
     Active Substance: COD LIVER OIL
  8. COQ10 [Concomitant]
     Active Substance: UBIDECARENONE

REACTIONS (3)
  - Rash [Unknown]
  - Skin swelling [Unknown]
  - Decreased appetite [Unknown]
